FAERS Safety Report 25568984 (Version 2)
Quarter: 2025Q3

REPORT INFORMATION
  Report Type: Report from Study
  Country: EU (occurrence: EU)
  Receive Date: 20250716
  Receipt Date: 20250724
  Transmission Date: 20251020
  Serious: Yes (Other)
  Sender: MYLAN
  Company Number: EU-MYLANLABS-2025M1057976

PATIENT
  Age: 73 Year
  Sex: Female

DRUGS (16)
  1. REMIFENTANIL [Interacting]
     Active Substance: REMIFENTANIL
     Indication: Anaesthesia
  2. REMIFENTANIL [Interacting]
     Active Substance: REMIFENTANIL
     Route: 042
  3. REMIFENTANIL [Interacting]
     Active Substance: REMIFENTANIL
     Route: 042
  4. REMIFENTANIL [Interacting]
     Active Substance: REMIFENTANIL
  5. ROCURONIUM [Interacting]
     Active Substance: ROCURONIUM BROMIDE
     Indication: Anaesthesia
  6. ROCURONIUM [Interacting]
     Active Substance: ROCURONIUM BROMIDE
     Route: 042
  7. ROCURONIUM [Interacting]
     Active Substance: ROCURONIUM BROMIDE
     Route: 042
  8. ROCURONIUM [Interacting]
     Active Substance: ROCURONIUM BROMIDE
  9. DOXEPIN [Interacting]
     Active Substance: DOXEPIN
     Indication: Depression
  10. DOXEPIN [Interacting]
     Active Substance: DOXEPIN
     Route: 065
  11. DOXEPIN [Interacting]
     Active Substance: DOXEPIN
     Route: 065
  12. DOXEPIN [Interacting]
     Active Substance: DOXEPIN
  13. PROPOFOL [Interacting]
     Active Substance: PROPOFOL
     Indication: Anaesthesia
  14. PROPOFOL [Interacting]
     Active Substance: PROPOFOL
     Route: 042
  15. PROPOFOL [Interacting]
     Active Substance: PROPOFOL
     Route: 042
  16. PROPOFOL [Interacting]
     Active Substance: PROPOFOL

REACTIONS (2)
  - Hypotension [Unknown]
  - Drug interaction [Unknown]
